FAERS Safety Report 9790973 (Version 2)
Quarter: 2014Q1

REPORT INFORMATION
  Report Type: Report from Study
  Country: NL (occurrence: NL)
  Receive Date: 20131231
  Receipt Date: 20140204
  Transmission Date: 20141002
  Serious: Yes (Other)
  Sender: FDA-Public Use
  Company Number: NL-ABBVIE-13P-114-1183206-00

PATIENT
  Sex: Female

DRUGS (1)
  1. LUCRIN [Suspect]
     Indication: LEIOMYOMA
     Route: 058
     Dates: start: 20131119

REACTIONS (6)
  - Deafness unilateral [Unknown]
  - Insomnia [Not Recovered/Not Resolved]
  - Myalgia [Not Recovered/Not Resolved]
  - Headache [Not Recovered/Not Resolved]
  - Arthralgia [Not Recovered/Not Resolved]
  - Dysphonia [Not Recovered/Not Resolved]
